FAERS Safety Report 4494418-9 (Version None)
Quarter: 2004Q4

REPORT INFORMATION
  Report Type: 
  Country: None (occurrence: None)
  Receive Date: 20041104
  Receipt Date: 20041104
  Transmission Date: 20050328
  Serious: Yes (Life-Threatening)
  Sender: FDA-Public Use
  Company Number: None

PATIENT
  Age: 80 Year
  Sex: Male
  Weight: 75.7507 kg

DRUGS (9)
  1. CLONIDINE [Suspect]
     Indication: HYPERTENSION
     Dosage: 0.6 MG PO A DAY
     Route: 048
  2. ATENOLOL [Suspect]
     Indication: HYPERTENSION
     Dosage: 100 MG PO Q DAY
     Route: 048
  3. IRBESARTAN [Suspect]
     Indication: HYPERTENSION
     Dosage: 300 MG PO Q DAY
     Route: 048
  4. HYDRALAZINE [Suspect]
     Indication: HYPERTENSION
     Dosage: 100 MG PO QDAY
     Route: 048
  5. PROTONIX [Concomitant]
  6. ASPIRIN [Concomitant]
  7. ATORVASTATIN CALCIUM [Concomitant]
  8. FOLIC ACID [Concomitant]
  9. XALATAN [Concomitant]

REACTIONS (5)
  - BLOOD PRESSURE DECREASED [None]
  - DEHYDRATION [None]
  - DIARRHOEA [None]
  - HEART RATE DECREASED [None]
  - MENTAL STATUS CHANGES [None]
